FAERS Safety Report 6920593-X (Version None)
Quarter: 2010Q3

REPORT INFORMATION
  Report Type: 
  Country: None (occurrence: None)
  Receive Date: 20100812
  Receipt Date: 20100809
  Transmission Date: 20110219
  Serious: No
  Sender: FDA-Public Use
  Company Number: 2009BI021196

PATIENT
  Sex: Female

DRUGS (1)
  1. TYSABRI [Suspect]
     Indication: MULTIPLE SCLEROSIS
     Route: 042
     Dates: start: 20090330

REACTIONS (13)
  - APATHY [None]
  - ASTHENIA [None]
  - DIARRHOEA [None]
  - EMOTIONAL DISORDER [None]
  - FATIGUE [None]
  - MULTIPLE SCLEROSIS RELAPSE [None]
  - MUSCULOSKELETAL STIFFNESS [None]
  - PANIC DISORDER [None]
  - RASH [None]
  - TEMPERATURE INTOLERANCE [None]
  - URTICARIA [None]
  - VERTIGO [None]
  - WEIGHT INCREASED [None]
